FAERS Safety Report 18530879 (Version 3)
Quarter: 2020Q4

REPORT INFORMATION
  Report Type: Report from Study
  Country: CO (occurrence: CO)
  Receive Date: 20201121
  Receipt Date: 20201215
  Transmission Date: 20210114
  Serious: Yes (Death, Hospitalization, Other)
  Sender: FDA-Public Use
  Company Number: NVSC2020CO307095

PATIENT
  Age: 70 Year
  Sex: Male

DRUGS (1)
  1. REVOLADE [Suspect]
     Active Substance: ELTROMBOPAG
     Indication: APLASTIC ANAEMIA
     Dosage: 150 MG, Q24H
     Route: 048
     Dates: start: 202010

REACTIONS (9)
  - Productive cough [Unknown]
  - Dyspnoea [Unknown]
  - Sneezing [Unknown]
  - Platelet count decreased [Unknown]
  - COVID-19 [Fatal]
  - Chest pain [Unknown]
  - Systemic lupus erythematosus [Unknown]
  - Choking [Unknown]
  - Decreased immune responsiveness [Fatal]

NARRATIVE: CASE EVENT DATE: 202010
